FAERS Safety Report 6108007-3 (Version None)
Quarter: 2009Q1

REPORT INFORMATION
  Report Type: 
  Country: None (occurrence: None)
  Receive Date: 20090305
  Receipt Date: 20090305
  Transmission Date: 20090719
  Serious: No
  Sender: FDA-Public Use
  Company Number: None

PATIENT
  Sex: Female
  Weight: 90.7194 kg

DRUGS (3)
  1. REGLAN [Suspect]
     Indication: GASTROOESOPHAGEAL REFLUX DISEASE
     Dosage: 1 DAILY PO ABOUT 2 YEARS
     Route: 048
     Dates: start: 20050101, end: 20071001
  2. REGLAN [Suspect]
     Indication: IMPAIRED GASTRIC EMPTYING
     Dosage: 1 DAILY PO ABOUT 2 YEARS
     Route: 048
     Dates: start: 20050101, end: 20071001
  3. . [Concomitant]

REACTIONS (3)
  - SPINAL OSTEOARTHRITIS [None]
  - SURGICAL FAILURE [None]
  - TARDIVE DYSKINESIA [None]
